FAERS Safety Report 9562665 (Version 1)
Quarter: 2013Q3

REPORT INFORMATION
  Report Type: Spontaneous
  Country: US (occurrence: US)
  Receive Date: 20130927
  Receipt Date: 20130927
  Transmission Date: 20140515
  Serious: No
  Sender: FDA-Public Use
  Company Number: US-PFIZER INC-2013277541

PATIENT
  Age: 86 Year
  Sex: Female
  Weight: 52.15 kg

DRUGS (1)
  1. ADVIL [Suspect]
     Indication: ARTHRALGIA
     Dosage: UNK, ONCE A DAY
     Route: 048
     Dates: start: 20130924, end: 20130924

REACTIONS (4)
  - Drug hypersensitivity [Unknown]
  - Paraesthesia [Unknown]
  - Feeling abnormal [Unknown]
  - Malaise [Unknown]
